FAERS Safety Report 13957823 (Version 2)
Quarter: 2017Q3

REPORT INFORMATION
  Report Type: Report from Study
  Country: US (occurrence: US)
  Receive Date: 20170911
  Receipt Date: 20170928
  Transmission Date: 20171128
  Serious: Yes (Hospitalization, Other)
  Sender: FDA-Public Use
  Company Number: US-BAYER-2017-148451

PATIENT
  Age: 63 Year
  Sex: Male

DRUGS (2)
  1. STIVARGA [Suspect]
     Active Substance: REGORAFENIB
     Indication: COLORECTAL CANCER
     Dosage: 120 MG, QD
     Route: 048
     Dates: start: 20170731, end: 20170809
  2. STIVARGA [Suspect]
     Active Substance: REGORAFENIB
     Indication: COLORECTAL CANCER
     Dosage: 160 MG, QD
     Route: 048
     Dates: start: 20170810, end: 20170824

REACTIONS (21)
  - Colorectal cancer stage IV [None]
  - Sputum discoloured [Not Recovered/Not Resolved]
  - Hypotension [Recovering/Resolving]
  - Weight decreased [Recovering/Resolving]
  - Pyrexia [None]
  - Dehydration [None]
  - Fatigue [Recovering/Resolving]
  - Depression [Not Recovered/Not Resolved]
  - Off label use [None]
  - Fatigue [None]
  - Diarrhoea [None]
  - Hypersomnia [Recovering/Resolving]
  - Decreased appetite [None]
  - Decreased appetite [Recovering/Resolving]
  - Productive cough [Not Recovered/Not Resolved]
  - Somnolence [Not Recovered/Not Resolved]
  - Heart rate increased [Recovering/Resolving]
  - Pain in extremity [Not Recovered/Not Resolved]
  - Vomiting [None]
  - Hiccups [Not Recovered/Not Resolved]
  - Asthenia [None]

NARRATIVE: CASE EVENT DATE: 2017
